FAERS Safety Report 22080146 (Version 1)
Quarter: 2023Q1

REPORT INFORMATION
  Report Type: Spontaneous
  Country: CN (occurrence: CN)
  Receive Date: 20230309
  Receipt Date: 20230309
  Transmission Date: 20230417
  Serious: Yes (Life-Threatening)
  Sender: FDA-Public Use
  Company Number: CN-BAYER-2023A030582

PATIENT
  Age: 48 Year
  Sex: Female

DRUGS (2)
  1. ULTRAVIST [Suspect]
     Active Substance: IOPROMIDE
     Indication: Angiogram
     Dosage: 76.89 G, ONCE, HIGH PRESSURE INJECTION
     Route: 042
     Dates: start: 20230221, end: 20230221
  2. ULTRAVIST [Suspect]
     Active Substance: IOPROMIDE
     Indication: Cerebral haemorrhage

REACTIONS (10)
  - Contrast media allergy [Recovering/Resolving]
  - Anaphylactic shock [Recovering/Resolving]
  - Loss of consciousness [Recovering/Resolving]
  - Nausea [None]
  - Vomiting [None]
  - Asthenia [None]
  - Hyperhidrosis [None]
  - Cold sweat [None]
  - Dyspnoea [None]
  - Cyanosis [None]

NARRATIVE: CASE EVENT DATE: 20230221
